FAERS Safety Report 22272130 (Version 9)
Quarter: 2023Q2

REPORT INFORMATION
  Report Type: Spontaneous
  Country: US (occurrence: US)
  Receive Date: 20230502
  Receipt Date: 20230523
  Transmission Date: 20230721
  Serious: No
  Sender: FDA-Public Use
  Company Number: US-BIOGEN-2023BI01201396

PATIENT
  Sex: Female

DRUGS (9)
  1. VUMERITY [Suspect]
     Active Substance: DIROXIMEL FUMARATE
     Indication: Multiple sclerosis
     Dosage: FOR THE FIRST 7 DAYS
     Route: 050
     Dates: start: 20230424, end: 20230501
  2. VUMERITY [Suspect]
     Active Substance: DIROXIMEL FUMARATE
     Dosage: THEN TAKE 2 CAPSULES (462MG) TWICE DAILY THEREAFTER
     Route: 050
  3. ZYRTEC ALLERGY CHILDRENS [Concomitant]
     Route: 050
  4. NASONEX [Concomitant]
     Active Substance: MOMETASONE FUROATE
     Route: 050
  5. MUCINEX [Concomitant]
     Active Substance: GUAIFENESIN
     Route: 050
  6. CALCIUM\VITAMIN D [Concomitant]
     Active Substance: CALCIUM\VITAMIN D
     Route: 050
  7. AMOXICILLIN [Concomitant]
     Active Substance: AMOXICILLIN
     Route: 050
  8. VALTREX [Concomitant]
     Active Substance: VALACYCLOVIR HYDROCHLORIDE
     Route: 050
  9. IMVEXXY [Concomitant]
     Active Substance: ESTRADIOL
     Route: 050

REACTIONS (11)
  - Oesophageal pain [Unknown]
  - Somnolence [Unknown]
  - Weight decreased [Unknown]
  - Fatigue [Unknown]
  - Depressed mood [Unknown]
  - Eating disorder [Unknown]
  - Dyspnoea [Recovered/Resolved]
  - Nausea [Unknown]
  - Hypersensitivity [Unknown]
  - Flushing [Recovered/Resolved]
  - Drug intolerance [Unknown]

NARRATIVE: CASE EVENT DATE: 20230101
